FAERS Safety Report 19164863 (Version 2)
Quarter: 2021Q3

REPORT INFORMATION
  Report Type: Spontaneous
  Country: US (occurrence: US)
  Receive Date: 20210421
  Receipt Date: 20210729
  Transmission Date: 20211014
  Serious: No
  Sender: FDA-Public Use
  Company Number: US-PARATEK PHARMACEUTICALS, INC.-2021PTK00039

PATIENT
  Age: 46 Year
  Sex: Male

DRUGS (2)
  1. NUZYRA [Suspect]
     Active Substance: OMADACYCLINE
     Indication: CELLULITIS
     Dosage: 300 MG, 1X/DAY
     Route: 048
     Dates: start: 20210205, end: 20210212
  2. NUZYRA [Suspect]
     Active Substance: OMADACYCLINE
     Indication: CARBUNCLE

REACTIONS (2)
  - Rash [Recovered/Resolved]
  - Incorrect dose administered [Recovered/Resolved]

NARRATIVE: CASE EVENT DATE: 202102
